FAERS Safety Report 14352813 (Version 2)
Quarter: 2018Q1

REPORT INFORMATION
  Report Type: Spontaneous
  Country: US (occurrence: US)
  Receive Date: 20180104
  Receipt Date: 20180124
  Transmission Date: 20180509
  Serious: No
  Sender: FDA-Public Use
  Company Number: US-GE HEALTHCARE LIFE SCIENCES-2017CSU004232

PATIENT
  Sex: Female
  Weight: 65 kg

DRUGS (3)
  1. VISIPAQUE [Suspect]
     Active Substance: IODIXANOL
     Dosage: 110 ML, SINGLE
     Route: 042
     Dates: start: 20171206, end: 20171206
  2. VISIPAQUE [Suspect]
     Active Substance: IODIXANOL
     Indication: CHEST PAIN
     Dosage: 20 ML, SINGLE
     Route: 042
     Dates: start: 20171206, end: 20171206
  3. VISIPAQUE [Suspect]
     Active Substance: IODIXANOL
     Dosage: 20 ML, SINGLE
     Route: 042
     Dates: start: 20171206, end: 20171206

REACTIONS (1)
  - Sneezing [Recovered/Resolved]

NARRATIVE: CASE EVENT DATE: 20171206
